FAERS Safety Report 15980666 (Version 4)
Quarter: 2019Q2

REPORT INFORMATION
  Report Type: Spontaneous
  Country: KZ (occurrence: KZ)
  Receive Date: 20190219
  Receipt Date: 20190411
  Transmission Date: 20190711
  Serious: Yes (Death, Hospitalization, Other)
  Sender: FDA-Public Use
  Company Number: KZ-JNJFOC-20190215798

PATIENT
  Age: 32 Year
  Sex: Male
  Weight: 57.2 kg

DRUGS (8)
  1. BEDAQUILINE [Suspect]
     Active Substance: BEDAQUILINE
     Indication: TUBERCULOSIS
     Dosage: 400 (200) MG
     Route: 048
     Dates: start: 20180525, end: 20190209
  2. CLOFAZIMINE [Suspect]
     Active Substance: CLOFAZIMINE
     Indication: TUBERCULOSIS
     Dosage: 200 (100) MG
     Route: 048
     Dates: start: 20180525, end: 20190209
  3. LAMIVUDINE W/ZIDOVUDINE [Concomitant]
     Active Substance: LAMIVUDINE\ZIDOVUDINE
     Indication: HIV INFECTION
     Dosage: LAMIVUDINE- 150 MG??ZIDOVUDINE- 300 MG
     Route: 065
  4. LINEZOLID. [Suspect]
     Active Substance: LINEZOLID
     Indication: TUBERCULOSIS
     Route: 048
     Dates: start: 20180525, end: 20190209
  5. EFAVIRENZ. [Concomitant]
     Active Substance: EFAVIRENZ
     Indication: HIV INFECTION
     Route: 065
  6. PYRAZINAMIDE. [Suspect]
     Active Substance: PYRAZINAMIDE
     Indication: TUBERCULOSIS
     Route: 048
     Dates: start: 20180525, end: 20190209
  7. SULFAMETHOXAZOLE AND TRIMETHOPRIM [Concomitant]
     Active Substance: SULFAMETHOXAZOLE\TRIMETHOPRIM
     Indication: HIV INFECTION
     Dosage: SULFAMETHOXAZOLE- 400 MG??TRIMETHOPRIM 80 MG
     Route: 065
  8. DELAMANID [Suspect]
     Active Substance: DELAMANID
     Indication: TUBERCULOSIS
     Route: 048
     Dates: start: 20180525, end: 20190209

REACTIONS (8)
  - Intentional product use issue [Unknown]
  - Sepsis [Fatal]
  - Tubulointerstitial nephritis [Fatal]
  - Hepatitis toxic [Fatal]
  - Diabetic ketoacidotic hyperglycaemic coma [Fatal]
  - Hepatitis C [Unknown]
  - Generalised tonic-clonic seizure [Fatal]
  - Off label use [Unknown]

NARRATIVE: CASE EVENT DATE: 20190209
